FAERS Safety Report 5318278-9 (Version None)
Quarter: 2007Q2

REPORT INFORMATION
  Report Type: 
  Country: None (occurrence: None)
  Receive Date: 20070507
  Receipt Date: 20070425
  Transmission Date: 20071010
  Serious: Yes (Death, Other)
  Sender: FDA-Public Use
  Company Number: JP-PFIZER INC-2007033939

PATIENT
  Age: 68 Year
  Sex: Female

DRUGS (6)
  1. SULPERAZON [Suspect]
     Indication: CYSTITIS
  2. CYCLOPHOSPHAMIDE [Suspect]
     Indication: B-CELL LYMPHOMA
  3. DOXORUBICIN HCL [Suspect]
     Indication: B-CELL LYMPHOMA
  4. VINCRISTINE [Suspect]
     Indication: B-CELL LYMPHOMA
  5. PREDNISOLONE [Suspect]
     Indication: B-CELL LYMPHOMA
  6. MEROPENEM [Suspect]

REACTIONS (7)
  - BLOOD ALKALINE PHOSPHATASE INCREASED [None]
  - CYSTITIS [None]
  - FEBRILE NEUTROPENIA [None]
  - HEPATIC FUNCTION ABNORMAL [None]
  - PSEUDOMEMBRANOUS COLITIS [None]
  - SHOCK [None]
  - TRANSAMINASES INCREASED [None]
